FAERS Safety Report 17272582 (Version 1)
Quarter: 2020Q1

REPORT INFORMATION
  Report Type: Spontaneous
  Country: US (occurrence: US)
  Receive Date: 20200115
  Receipt Date: 20200115
  Transmission Date: 20200409
  Serious: Yes (Hospitalization)
  Sender: FDA-Public Use
  Company Number: US-ASTRAZENECA-2020SE04237

PATIENT
  Sex: Female

DRUGS (2)
  1. FASLODEX [Suspect]
     Active Substance: FULVESTRANT
     Route: 030
  2. IBRANCE [Suspect]
     Active Substance: PALBOCICLIB
     Indication: BREAST CANCER
     Route: 048
     Dates: start: 20191205, end: 20191225

REACTIONS (9)
  - Acute pulmonary oedema [Unknown]
  - Leukopenia [Unknown]
  - Eating disorder [Unknown]
  - Stomatitis [Unknown]
  - Oropharyngeal discomfort [Unknown]
  - Hyperkalaemia [Unknown]
  - Burning sensation [Unknown]
  - Hypoxia [Unknown]
  - Fatigue [Unknown]
